FAERS Safety Report 17725940 (Version 7)
Quarter: 2021Q1

REPORT INFORMATION
  Report Type: Report from Study
  Country: CA (occurrence: CA)
  Receive Date: 20200429
  Receipt Date: 20210226
  Transmission Date: 20210419
  Serious: Yes (Other)
  Sender: FDA-Public Use
  Company Number: NVSC2020CA115612

PATIENT
  Age: 71 Year
  Sex: Female

DRUGS (3)
  1. SANDOSTATIN LAR DEPOT [Suspect]
     Active Substance: OCTREOTIDE ACETATE
     Dosage: 40 MG, Q4W
     Route: 030
     Dates: start: 20201126
  2. SANDOSTATIN LAR DEPOT [Suspect]
     Active Substance: OCTREOTIDE ACETATE
     Indication: ACROMEGALY
     Dosage: 20 MG, QMO
     Route: 030
     Dates: start: 20191216
  3. SANDOSTATIN LAR DEPOT [Suspect]
     Active Substance: OCTREOTIDE ACETATE
     Dosage: 40 MG, QMO (4 WEEKS)
     Route: 030
     Dates: start: 20191216

REACTIONS (16)
  - Choking sensation [Unknown]
  - Hypertension [Unknown]
  - Fatigue [Unknown]
  - Nausea [Unknown]
  - Blood pressure systolic increased [Unknown]
  - Epilepsy [Unknown]
  - Feeling abnormal [Unknown]
  - Gastrointestinal motility disorder [Recovering/Resolving]
  - Sleep apnoea syndrome [Unknown]
  - Thirst [Unknown]
  - Anxiety [Unknown]
  - Insomnia [Unknown]
  - Confusional state [Unknown]
  - Dyspnoea [Unknown]
  - Faeces soft [Unknown]
  - Dysstasia [Unknown]

NARRATIVE: CASE EVENT DATE: 20200506
